FAERS Safety Report 12255640 (Version 1)
Quarter: 2016Q2

REPORT INFORMATION
  Report Type: Spontaneous
  Country: US (occurrence: None)
  Receive Date: 20160411
  Receipt Date: 20160411
  Transmission Date: 20160815
  Serious: Yes (Hospitalization)
  Sender: FDA-Public Use
  Company Number: None

PATIENT
  Age: 28 Year
  Sex: Male
  Weight: 98.8 kg

DRUGS (2)
  1. VANCOMYCIN 1000MG MYLAN (67457-0340-01) [Suspect]
     Active Substance: VANCOMYCIN
     Dosage: 1750MG Q8 IV (PICC)
     Route: 042
     Dates: start: 20160309, end: 20160311
  2. VANCOMYCIN 10 GRAMS HOSPIRA [Suspect]
     Active Substance: VANCOMYCIN
     Indication: ABSCESS LIMB
     Dosage: 1750MG Q8 IV (PICC)
     Route: 042
     Dates: start: 20160309, end: 20160311

REACTIONS (6)
  - Headache [None]
  - Tachycardia [None]
  - Myalgia [None]
  - Infusion related reaction [None]
  - Flushing [None]
  - Chest discomfort [None]

NARRATIVE: CASE EVENT DATE: 20160310
